FAERS Safety Report 15034367 (Version 1)
Quarter: 2018Q2

REPORT INFORMATION
  Report Type: Spontaneous
  Country: DE (occurrence: DE)
  Receive Date: 20180620
  Receipt Date: 20180620
  Transmission Date: 20180711
  Serious: Yes (Hospitalization)
  Sender: FDA-Public Use
  Company Number: DE-TEVA-2018-DE-908614

PATIENT
  Age: 49 Year
  Sex: Female
  Weight: 70 kg

DRUGS (18)
  1. TORASEMID [Concomitant]
     Active Substance: TORSEMIDE
     Dosage: 1-0-0-0
     Route: 048
  2. PANTOPRAZOL [Concomitant]
     Active Substance: PANTOPRAZOLE SODIUM
     Dosage: 1-0-0-0
     Route: 048
  3. DEKRISTOL 20000I.E. [Concomitant]
     Dosage: 1-0-0-0
     Route: 048
  4. MYFORTIC [Suspect]
     Active Substance: MYCOPHENOLATE SODIUM
     Dosage: 2-0-2-0
     Route: 048
  5. DOXAZOSIN [Concomitant]
     Active Substance: DOXAZOSIN\DOXAZOSIN MESYLATE
     Dosage: 0-0-1-0
     Route: 048
  6. MIRTAZAPIN [Concomitant]
     Active Substance: MIRTAZAPINE
     Dosage: 0-0-1-0
     Route: 048
  7. AMLODIPIN [Concomitant]
     Active Substance: AMLODIPINE BESYLATE
     Dosage: 0-0-1-0
     Route: 048
  8. SIMVASTATIN. [Concomitant]
     Active Substance: SIMVASTATIN
     Dosage: 0-0-1-0
     Route: 048
  9. BICANORM [Concomitant]
     Active Substance: SODIUM BICARBONATE
     Dosage: 1-1-1-1
     Route: 048
  10. ALLOPURINOL. [Concomitant]
     Active Substance: ALLOPURINOL
     Dosage: 0-0-1-0
     Route: 048
  11. CALCITRIOL. [Concomitant]
     Active Substance: CALCITRIOL
     Dosage: 1-0-0-0
     Route: 048
  12. ADVAGRAF 1MG [Suspect]
     Active Substance: TACROLIMUS
     Dosage: 1-0-0-0
     Route: 048
  13. RAMIPRIL. [Concomitant]
     Active Substance: RAMIPRIL
     Dosage: 1-0-0-0
     Route: 048
  14. PREDNISON 5MG [Suspect]
     Active Substance: PREDNISONE
     Dosage: 1-0-0-0
     Route: 048
  15. EUTHYROX 50MIKROGRAMM [Concomitant]
     Dosage: 1-0-0-0
     Route: 048
  16. BISOPROLOL [Concomitant]
     Active Substance: BISOPROLOL
     Dosage: 1-0-0-0
     Route: 048
  17. ADVAGRAF 5MG [Suspect]
     Active Substance: TACROLIMUS
     Dosage: 1-0-0-0
     Route: 048
  18. APIXABAN [Concomitant]
     Active Substance: APIXABAN
     Dosage: 1-0-1-0
     Route: 048

REACTIONS (7)
  - Headache [Unknown]
  - Diarrhoea [Unknown]
  - Renal impairment [Unknown]
  - Cough [Unknown]
  - Pain [Unknown]
  - Decreased appetite [Unknown]
  - Pyrexia [Unknown]
